FAERS Safety Report 16890155 (Version 1)
Quarter: 2019Q4

REPORT INFORMATION
  Report Type: Spontaneous
  Country: US (occurrence: US)
  Receive Date: 20191007
  Receipt Date: 20191007
  Transmission Date: 20200122
  Serious: No
  Sender: FDA-Public Use
  Company Number: US-MYLANLABS-2019M1090650

PATIENT
  Sex: Female
  Weight: 68.03 kg

DRUGS (3)
  1. EPINEPHRINE INJECTION USP AUTO-INJECTOR [Suspect]
     Active Substance: EPINEPHRINE
     Indication: HYPERSENSITIVITY
     Dosage: UNK
     Route: 058
  2. EPINEPHRINE INJECTION USP AUTO-INJECTOR [Suspect]
     Active Substance: EPINEPHRINE
     Indication: RASH
  3. EPINEPHRINE INJECTION USP AUTO-INJECTOR [Suspect]
     Active Substance: EPINEPHRINE
     Indication: SWELLING FACE

REACTIONS (1)
  - Injection site haemorrhage [Recovered/Resolved]
